FAERS Safety Report 4719237-7 (Version None)
Quarter: 2005Q3

REPORT INFORMATION
  Report Type: 
  Country: None (occurrence: None)
  Receive Date: 20050718
  Receipt Date: 20050713
  Transmission Date: 20060218
  Serious: Yes (Hospitalization)
  Sender: FDA-Public Use
  Company Number: UKP05000245

PATIENT

DRUGS (1)
  1. ASACOL [Suspect]
     Dosage: 800 MG, 2/DAY, ORAL
     Route: 048

REACTIONS (2)
  - DYSPHAGIA [None]
  - NEOPLASM MALIGNANT [None]
